FAERS Safety Report 6480887-1 (Version None)
Quarter: 2009Q4

REPORT INFORMATION
  Report Type: 
  Country: None (occurrence: None)
  Receive Date: 20091208
  Receipt Date: 20091202
  Transmission Date: 20100525
  Serious: Yes (Death)
  Sender: FDA-Public Use
  Company Number: US-CELGENEUS-163-20785-09120441

PATIENT
  Sex: Male

DRUGS (7)
  1. THALOMID [Suspect]
     Indication: MULTIPLE MYELOMA
     Route: 048
     Dates: start: 20091101, end: 20091101
  2. THALOMID [Suspect]
     Route: 048
     Dates: start: 20060901, end: 20060101
  3. THALOMID [Suspect]
     Route: 048
     Dates: start: 20060801, end: 20060101
  4. REVLIMID [Suspect]
     Indication: MULTIPLE MYELOMA
     Route: 048
     Dates: start: 20090901
  5. REVLIMID [Suspect]
     Dosage: 25-10MG
     Route: 048
     Dates: start: 20090401, end: 20090101
  6. REVLIMID [Suspect]
     Dosage: 5-10MG
     Route: 048
     Dates: start: 20080901
  7. REVLIMID [Suspect]
     Route: 048
     Dates: start: 20080501, end: 20080101

REACTIONS (1)
  - MULTIPLE MYELOMA [None]
